FAERS Safety Report 5040414-2 (Version None)
Quarter: 2006Q2

REPORT INFORMATION
  Report Type: 
  Country: None (occurrence: None)
  Receive Date: 20060630
  Receipt Date: 20060620
  Transmission Date: 20061013
  Serious: Yes (Hospitalization)
  Sender: FDA-Public Use
  Company Number: FR-GLAXOSMITHKLINE-B0428326A

PATIENT
  Age: 53 Year
  Sex: Female

DRUGS (3)
  1. REQUIP [Suspect]
     Indication: PARKINSON'S DISEASE
     Dosage: 15MG PER DAY
     Route: 048
     Dates: start: 20030615, end: 20060320
  2. SELEGILINE HCL [Suspect]
     Indication: PARKINSON'S DISEASE
     Dosage: 6MG PER DAY
     Route: 048
     Dates: start: 20030615
  3. MODOPAR [Suspect]
     Indication: PARKINSON'S DISEASE
     Dosage: 62.5MG FOUR TIMES PER DAY
     Route: 048
     Dates: start: 20030615

REACTIONS (7)
  - AGGRESSION [None]
  - CEREBRAL DISORDER [None]
  - DEPRESSION [None]
  - LIBIDO INCREASED [None]
  - PATHOLOGICAL GAMBLING [None]
  - PERSONALITY CHANGE [None]
  - SUICIDE ATTEMPT [None]
